FAERS Safety Report 8996663 (Version 2)
Quarter: 2013Q1

REPORT INFORMATION
  Report Type: Spontaneous
  Country: US (occurrence: US)
  Receive Date: 20130104
  Receipt Date: 20130118
  Transmission Date: 20140127
  Serious: Yes (Other)
  Sender: FDA-Public Use
  Company Number: US-PFIZER INC-2013001983

PATIENT
  Age: 71 Year
  Sex: Male
  Weight: 59.86 kg

DRUGS (10)
  1. SIMVASTATIN [Concomitant]
     Indication: BLOOD CHOLESTEROL INCREASED
     Dosage: 20 MG, UNK
  2. BENAZEPRIL [Concomitant]
     Indication: HYPERTENSION
     Dosage: UNK
  3. HYDROCHLOROTHIAZIDE [Concomitant]
     Indication: HYPERTENSION
     Dosage: UNK
  4. CELEBREX [Suspect]
     Indication: ARTHRITIS
     Dosage: 200 MG, 2X/DAY
     Route: 048
  5. ASPIRIN [Concomitant]
     Indication: CARDIAC DISORDER
     Dosage: 81 MG, 2X/DAY
  6. METOPROLOL [Concomitant]
     Indication: CARDIAC DISORDER
     Dosage: 25 MG, 2X/DAY
  7. CALCIUM CARBONATE [Concomitant]
     Dosage: 600 MG, 2X/DAY
  8. VITAMIN D [Concomitant]
     Dosage: 400 MG, 2X/DAY
  9. PROTONIX [Concomitant]
     Dosage: 40 MG, 2X/DAY
  10. MAGNESIUM OXIDE [Concomitant]
     Dosage: 500 MG, UNK

REACTIONS (3)
  - Road traffic accident [Unknown]
  - Limb injury [Unknown]
  - Cardiac disorder [Unknown]
